FAERS Safety Report 11444688 (Version 1)
Quarter: 2015Q3

REPORT INFORMATION
  Report Type: Not Available
  Country: US (occurrence: US)
  Receive Date: 20150902
  Receipt Date: 20150902
  Transmission Date: 20151125
  Serious: No
  Sender: FDA-Public Use
  Company Number: US-LUPIN PHARMACEUTICALS INC.-E2B_00003652

PATIENT
  Age: 63 Year
  Sex: Female
  Weight: 78.09 kg

DRUGS (1)
  1. MELOXICAM TABLETS USP 15MG [Suspect]
     Active Substance: MELOXICAM
     Indication: OSTEOARTHRITIS
     Dates: start: 201503, end: 201504

REACTIONS (2)
  - Muscular weakness [Recovered/Resolved]
  - Abdominal pain upper [Recovered/Resolved]

NARRATIVE: CASE EVENT DATE: 201503
